FAERS Safety Report 7777512-6 (Version None)
Quarter: 2011Q3

REPORT INFORMATION
  Report Type: 
  Country: None (occurrence: None)
  Receive Date: 20110926
  Receipt Date: 20110914
  Transmission Date: 20111222
  Serious: Yes (Hospitalization)
  Sender: FDA-Public Use
  Company Number: US-BAYER-2011-003080

PATIENT
  Age: 24 Year
  Sex: Female
  Weight: 47 kg

DRUGS (17)
  1. METOCLOPRAMIDE [Concomitant]
     Indication: GASTRITIS
     Dosage: 5 MG, HS
     Route: 048
     Dates: start: 20080301, end: 20081215
  2. CALCIUM CARBONATE [Concomitant]
  3. COMPAZINE [Concomitant]
  4. CIPROFLOXACIN [Concomitant]
     Route: 042
  5. TORADOL [Concomitant]
  6. YAZ [Suspect]
     Indication: PREMENSTRUAL SYNDROME
  7. METOCLOPRAMIDE [Concomitant]
     Dosage: 5 MG, MT
     Route: 048
     Dates: start: 20080301, end: 20081215
  8. PROTON PUMP INHIBITORS [Concomitant]
  9. ANTIBIOTICS [Concomitant]
     Route: 042
  10. PERCOCET [Concomitant]
  11. YAZ [Suspect]
     Indication: CONTRACEPTION
     Dosage: UNK
     Route: 048
     Dates: start: 20070701, end: 20090301
  12. NEXIUM [Concomitant]
  13. OMEPRAZOLE [Concomitant]
     Indication: GASTRITIS
     Dosage: 20 MG, QD
     Route: 048
     Dates: start: 20080302, end: 20080911
  14. PROCHLORPERAZINE [Concomitant]
     Dosage: 10 MG, QID
     Route: 048
     Dates: start: 20080327, end: 20080911
  15. REGLAN [Concomitant]
     Dosage: 5 MG, UNK
  16. ZOFRAN [Concomitant]
  17. INTRAVENOUS FLUIDS [Concomitant]

REACTIONS (7)
  - VOMITING [None]
  - PAIN [None]
  - NAUSEA [None]
  - ABDOMINAL PAIN UPPER [None]
  - CHOLECYSTITIS [None]
  - GALLBLADDER DISORDER [None]
  - DIARRHOEA [None]
